FAERS Safety Report 6633842-2 (Version None)
Quarter: 2010Q1

REPORT INFORMATION
  Report Type: 
  Country: None (occurrence: None)
  Receive Date: 20100315
  Receipt Date: 20100303
  Transmission Date: 20100710
  Serious: No
  Sender: FDA-Public Use
  Company Number: US-JNJFOC-20100301520

PATIENT
  Sex: Female
  Weight: 107.96 kg

DRUGS (13)
  1. FENTANYL-100 [Suspect]
     Indication: ARTHRITIS
     Route: 062
  2. FENTANYL-100 [Suspect]
     Indication: FIBROMYALGIA
     Route: 062
  3. FENTANYL [Suspect]
     Indication: ARTHRITIS
     Route: 062
  4. FENTANYL [Suspect]
     Indication: FIBROMYALGIA
     Route: 062
  5. LISINOPRIL [Concomitant]
     Route: 048
  6. NEURONTIN [Concomitant]
     Route: 048
  7. PAXIL [Concomitant]
     Route: 048
  8. CARDIZEM [Concomitant]
     Route: 048
  9. SIMVASTATIN [Concomitant]
     Route: 048
  10. ASPIRIN [Concomitant]
     Route: 048
  11. NITROGLYCERIN [Concomitant]
  12. METOPROLOL [Concomitant]
     Route: 048
  13. IMDUR [Concomitant]
     Route: 048

REACTIONS (2)
  - PRODUCT ADHESION ISSUE [None]
  - WRONG TECHNIQUE IN DRUG USAGE PROCESS [None]
